FAERS Safety Report 9294121 (Version 2)
Quarter: 2013Q2

REPORT INFORMATION
  Report Type: Spontaneous
  Country: US (occurrence: US)
  Receive Date: 20130516
  Receipt Date: 20130626
  Transmission Date: 20140414
  Serious: Yes (Hospitalization, Other)
  Sender: FDA-Public Use
  Company Number: US-PFIZER INC-2013094489

PATIENT
  Age: 58 Year
  Sex: Female

DRUGS (2)
  1. REVATIO [Suspect]
     Indication: SCLERODERMA
     Dosage: 20 MG, 4X/DAY
     Dates: start: 20110224
  2. WARFARIN [Concomitant]
     Dosage: UNK

REACTIONS (1)
  - Gastrointestinal haemorrhage [Unknown]
